FAERS Safety Report 9886648 (Version 1)
Quarter: 2014Q1

REPORT INFORMATION
  Report Type: Spontaneous
  Country: US (occurrence: US)
  Receive Date: 20140210
  Receipt Date: 20140210
  Transmission Date: 20141002
  Serious: Yes (Other)
  Sender: FDA-Public Use
  Company Number: CHPA2014US002267

PATIENT
  Age: 49 Year
  Sex: Female

DRUGS (5)
  1. LAMISIL AT GEL [Suspect]
     Indication: FUNGAL INFECTION
     Dosage: UNK, QD
     Route: 061
     Dates: end: 20140126
  2. LAMISIL AT GEL [Suspect]
     Indication: OFF LABEL USE
  3. LAMISIL AT ATHLETE^S FOOT CREAM [Suspect]
     Indication: FUNGAL INFECTION
     Dosage: UNK, BID
     Route: 061
  4. LAMISIL AT ATHLETE^S FOOT CREAM [Suspect]
     Indication: OFF LABEL USE
  5. ANTIHYPERTENSIVES [Concomitant]
     Indication: HYPERTENSION

REACTIONS (4)
  - Eye infection [Recovered/Resolved]
  - Dry eye [Recovered/Resolved]
  - Therapeutic response unexpected [Unknown]
  - Drug ineffective for unapproved indication [Unknown]
